FAERS Safety Report 22204305 (Version 1)
Quarter: 2023Q2

REPORT INFORMATION
  Report Type: Other
  Country: MY (occurrence: None)
  Receive Date: 20230412
  Receipt Date: 20230412
  Transmission Date: 20230722
  Serious: Yes (Disabling)
  Sender: FDA-Public Use
  Company Number: MY-Square-000136

PATIENT
  Age: 27 Year
  Sex: Male

DRUGS (2)
  1. ACYCLOVIR [Suspect]
     Active Substance: ACYCLOVIR
     Indication: Optic neuritis
     Dosage: 800 MG FIVE TIMES DAILY FOR TWO WEEKS
     Route: 048
  2. ACYCLOVIR [Suspect]
     Active Substance: ACYCLOVIR
     Indication: Optic neuritis
     Dosage: 500 MG THREE TIMES DAILY (TID) FOR TWO WEEKS

REACTIONS (1)
  - Treatment failure [Unknown]
